FAERS Safety Report 8922156 (Version 1)
Quarter: 2012Q4

REPORT INFORMATION
  Report Type: 
  Country: CA (occurrence: CA)
  Receive Date: 20121123
  Receipt Date: 20121123
  Transmission Date: 20130627
  Serious: Yes (Other)
  Sender: FDA-Public Use
  Company Number: PHHY2012CA106779

PATIENT
  Sex: Female

DRUGS (2)
  1. ACLASTA [Suspect]
     Indication: OSTEOPOROSIS
     Dosage: UNK
     Route: 042
     Dates: start: 20101118
  2. ACLASTA [Suspect]
     Dosage: UNK
     Route: 042
     Dates: start: 20111212

REACTIONS (3)
  - Fall [Unknown]
  - Skin lesion [Unknown]
  - Bone pain [Unknown]
